FAERS Safety Report 15473613 (Version 2)
Quarter: 2018Q4

REPORT INFORMATION
  Report Type: Spontaneous
  Country: US (occurrence: US)
  Receive Date: 20181008
  Receipt Date: 20181008
  Transmission Date: 20190205
  Serious: Yes (Other)
  Sender: FDA-Public Use
  Company Number: US-EGALET US INC-US-2018EGA000773

PATIENT

DRUGS (5)
  1. OXYCODONE HYDROCHLORIDE. [Suspect]
     Active Substance: OXYCODONE HYDROCHLORIDE
     Indication: PALLIATIVE CARE
     Dosage: 300 MG, QD
     Route: 048
  2. OXYCODONE HYDROCHLORIDE. [Suspect]
     Active Substance: OXYCODONE HYDROCHLORIDE
     Indication: PALLIATIVE CARE
  3. LIDOCAINE. [Suspect]
     Active Substance: LIDOCAINE
     Indication: NEURALGIA
     Dosage: 0.5MG/KG/H
  4. HYDROMORPHONE [Suspect]
     Active Substance: HYDROMORPHONE
     Indication: PALLIATIVE CARE
     Dosage: UNK
     Route: 042
  5. LIDOCAINE. [Suspect]
     Active Substance: LIDOCAINE
     Dosage: 2MG/KG/H

REACTIONS (7)
  - Hallucinations, mixed [Unknown]
  - Respiratory distress [Unknown]
  - Agitation [Unknown]
  - Confusional state [Unknown]
  - Seizure [Unknown]
  - Delirium [Recovering/Resolving]
  - Paranoia [Unknown]
